FAERS Safety Report 6600248-1 (Version None)
Quarter: 2010Q1

REPORT INFORMATION
  Report Type: 
  Country: None (occurrence: None)
  Receive Date: 20100224
  Receipt Date: 20100215
  Transmission Date: 20100710
  Serious: Yes (Hospitalization)
  Sender: FDA-Public Use
  Company Number: FR-PFIZER INC-2009305979

PATIENT
  Age: 58 Year
  Sex: Female

DRUGS (4)
  1. CAMPTOSAR [Suspect]
     Indication: COLON CANCER
     Dosage: 200 MG, CYCLIC
     Route: 042
     Dates: start: 20090318
  2. ERBITUX [Suspect]
     Indication: COLON CANCER
     Dosage: 580 MG, CYCLIC
     Route: 042
     Dates: start: 20090318
  3. FLUOROURACIL [Suspect]
     Indication: COLON CANCER
     Dosage: 470 MG, CYCLIC
     Route: 042
     Dates: start: 20090318
  4. FLUOROURACIL [Suspect]
     Dosage: 2800 MG, CYCLIC
     Route: 040
     Dates: start: 20090318

REACTIONS (2)
  - ERYTHEMA [None]
  - POST INFLAMMATORY PIGMENTATION CHANGE [None]
